FAERS Safety Report 12824700 (Version 2)
Quarter: 2021Q1

REPORT INFORMATION
  Report Type: Report from Study
  Country: CO (occurrence: CO)
  Receive Date: 20161007
  Receipt Date: 20210123
  Transmission Date: 20210419
  Serious: No
  Sender: FDA-Public Use
  Company Number: PHHY2016CO137443

PATIENT
  Sex: Female
  Weight: 57 kg

DRUGS (1)
  1. TASIGNA [Suspect]
     Active Substance: NILOTINIB
     Indication: CHRONIC MYELOID LEUKAEMIA
     Dosage: 200 MG, QID
     Route: 048

REACTIONS (6)
  - Somnolence [Unknown]
  - Psychiatric symptom [Unknown]
  - Bone pain [Unknown]
  - Headache [Unknown]
  - Illness [Unknown]
  - Inappropriate schedule of product administration [Unknown]
